FAERS Safety Report 9450798 (Version 1)
Quarter: 2013Q3

REPORT INFORMATION
  Report Type: Spontaneous
  Country: US (occurrence: US)
  Receive Date: 20130809
  Receipt Date: 20130809
  Transmission Date: 20140515
  Serious: No
  Sender: FDA-Public Use
  Company Number: US-AMGEN-USASP2013042677

PATIENT
  Age: 52 Year
  Sex: Male

DRUGS (6)
  1. NEUPOGEN [Suspect]
     Indication: CHRONIC HEPATITIS C
     Dosage: 0.5 ML, QWK
     Route: 065
     Dates: start: 2006, end: 20130317
  2. XIFAXAN [Concomitant]
     Dosage: UNK
  3. TRUVADA [Concomitant]
     Dosage: UNK
  4. LEXIVA [Concomitant]
     Dosage: UNK
  5. KALEXATE [Concomitant]
     Dosage: UNK
  6. PRILOSEC                           /00661201/ [Concomitant]
     Dosage: UNK

REACTIONS (5)
  - Neutrophil count decreased [Unknown]
  - Unevaluable event [Unknown]
  - Insomnia [Unknown]
  - Malaise [Unknown]
  - Fatigue [Unknown]
